FAERS Safety Report 8385410 (Version 5)
Quarter: 2016Q3

REPORT INFORMATION
  Report Type: Spontaneous
  Country: US (occurrence: US)
  Receive Date: 20120202
  Receipt Date: 20160907
  Transmission Date: 20161109
  Serious: Yes (Disabling, Other)
  Sender: FDA-Public Use
  Company Number: US-JNJFOC-20120112326

PATIENT
  Age: 55 Year
  Sex: Male
  Weight: 107.96 kg

DRUGS (3)
  1. ALEVE [Concomitant]
     Active Substance: NAPROXEN SODIUM
     Indication: PAIN
     Route: 048
     Dates: start: 201011, end: 201107
  2. LEVAQUIN [Suspect]
     Active Substance: LEVOFLOXACIN
     Indication: SCROTAL CYST
     Route: 048
     Dates: start: 20101224, end: 201101
  3. LEVAQUIN [Suspect]
     Active Substance: LEVOFLOXACIN
     Indication: SCROTAL CYST
     Dosage: FOR 1 WEEK
     Route: 048
     Dates: start: 201212

REACTIONS (46)
  - Headache [Not Recovered/Not Resolved]
  - Fungal infection [Unknown]
  - Fall [Recovered/Resolved]
  - Feeling abnormal [Unknown]
  - Affective disorder [Recovered/Resolved]
  - Mental disorder [Recovering/Resolving]
  - Skin discolouration [Recovered/Resolved]
  - Genital swelling [Recovered/Resolved]
  - Mental impairment [Unknown]
  - Movement disorder [Not Recovered/Not Resolved]
  - Impaired work ability [Unknown]
  - Prostatomegaly [Not Recovered/Not Resolved]
  - Bone cyst [Unknown]
  - Cartilage atrophy [Unknown]
  - Photosensitivity reaction [Not Recovered/Not Resolved]
  - Feeling abnormal [Recovered/Resolved]
  - Tendon rupture [Recovered/Resolved]
  - Skin haemorrhage [Unknown]
  - Pain [Unknown]
  - Genital rash [Recovering/Resolving]
  - Paranoia [Not Recovered/Not Resolved]
  - Genital disorder male [Unknown]
  - Body height decreased [Not Recovered/Not Resolved]
  - Pain of skin [Recovered/Resolved]
  - Erythema [Recovered/Resolved]
  - Rash [Not Recovered/Not Resolved]
  - Anxiety [Not Recovered/Not Resolved]
  - Skin exfoliation [Unknown]
  - Weight fluctuation [Recovered/Resolved]
  - Nerve injury [Not Recovered/Not Resolved]
  - Eye disorder [Unknown]
  - Skin discolouration [Recovered/Resolved]
  - Tinnitus [Not Recovered/Not Resolved]
  - Muscle rupture [Not Recovered/Not Resolved]
  - Tendon rupture [Recovered/Resolved]
  - Anal sphincter atony [Recovered/Resolved]
  - Gait disturbance [Not Recovered/Not Resolved]
  - Haemorrhoids [Recovered/Resolved]
  - Skin exfoliation [Recovered/Resolved]
  - Scar [Recovered/Resolved]
  - Rotator cuff syndrome [Not Recovered/Not Resolved]
  - Arthritis [Not Recovered/Not Resolved]
  - Fatigue [Not Recovered/Not Resolved]
  - Asthenia [Not Recovered/Not Resolved]
  - Memory impairment [Not Recovered/Not Resolved]
  - Erythema [Recovered/Resolved]

NARRATIVE: CASE EVENT DATE: 201012
